FAERS Safety Report 9157833 (Version 1)
Quarter: 2013Q1

REPORT INFORMATION
  Report Type: Spontaneous
  Country: US (occurrence: US)
  Receive Date: 20130312
  Receipt Date: 20130312
  Transmission Date: 20140127
  Serious: No
  Sender: FDA-Public Use
  Company Number: US-009507513-1303USA004502

PATIENT
  Sex: Female
  Weight: 65.76 kg

DRUGS (1)
  1. IMPLANON [Suspect]
     Indication: CONTRACEPTION
     Dosage: 1 ROD/EVERY 3 YEARS
     Route: 059
     Dates: start: 201302

REACTIONS (3)
  - Implant site bruising [Recovering/Resolving]
  - Injection site discolouration [Recovering/Resolving]
  - Medical device complication [Unknown]
